FAERS Safety Report 24057509 (Version 2)
Quarter: 2024Q4

REPORT INFORMATION
  Report Type: Report from Study
  Country: US (occurrence: US)
  Receive Date: 20240706
  Receipt Date: 20241001
  Transmission Date: 20250114
  Serious: Yes (Other)
  Sender: ABBVIE
  Company Number: US-ABBVIE-5826459

PATIENT
  Sex: Female

DRUGS (1)
  1. SKYRIZI [Suspect]
     Active Substance: RISANKIZUMAB-RZAA
     Indication: Crohn^s disease
     Route: 058

REACTIONS (8)
  - Gastrointestinal disorder [Unknown]
  - Hernia [Unknown]
  - Surgery [Unknown]
  - Ileostomy [Unknown]
  - Ileostomy closure [Unknown]
  - Intestinal operation [Unknown]
  - Gastrointestinal procedural complication [Unknown]
  - Hysterotomy [Unknown]

NARRATIVE: CASE EVENT DATE: 20190101
